FAERS Safety Report 8173006-7 (Version None)
Quarter: 2012Q1

REPORT INFORMATION
  Report Type: 
  Country: None (occurrence: None)
  Receive Date: 20120229
  Receipt Date: 20120222
  Transmission Date: 20120608
  Serious: Yes (Death)
  Sender: FDA-Public Use
  Company Number: DE-JNJFOC-20120213439

PATIENT
  Sex: Female

DRUGS (17)
  1. DOXORUBICIN HCL [Suspect]
     Route: 040
  2. CYCLOPHOSPHAMIDE [Suspect]
     Route: 042
  3. CORTICOSTEROIDS [Concomitant]
     Route: 065
  4. DOCETAXEL [Suspect]
     Indication: BREAST CANCER
     Route: 042
  5. DOCETAXEL [Suspect]
     Route: 042
  6. DOCETAXEL [Suspect]
     Route: 042
  7. DOCETAXEL [Suspect]
     Route: 042
  8. DOXORUBICIN HCL [Suspect]
     Route: 040
  9. DOXORUBICIN HCL [Suspect]
     Route: 040
  10. CYCLOPHOSPHAMIDE [Suspect]
     Indication: BREAST CANCER
     Route: 042
  11. CORTICOSTEROIDS [Concomitant]
     Indication: PREMEDICATION
     Route: 065
  12. CORTICOSTEROIDS [Concomitant]
     Route: 065
  13. ANTIEMETIC [Concomitant]
     Indication: PROPHYLAXIS
     Route: 065
  14. DOXORUBICIN HCL [Suspect]
     Indication: BREAST CANCER
     Route: 040
  15. CYCLOPHOSPHAMIDE [Suspect]
     Route: 042
  16. CORTICOSTEROIDS [Concomitant]
     Route: 065
  17. CYCLOPHOSPHAMIDE [Suspect]
     Route: 042

REACTIONS (1)
  - CARDIAC FAILURE CONGESTIVE [None]
